FAERS Safety Report 10242718 (Version 1)
Quarter: 2014Q2

REPORT INFORMATION
  Report Type: Spontaneous
  Country: CA (occurrence: CA)
  Receive Date: 20140617
  Receipt Date: 20140617
  Transmission Date: 20141212
  Serious: Yes (Life-Threatening, Hospitalization, Other)
  Sender: FDA-Public Use
  Company Number: CA-009507513-1406CAN007859

PATIENT
  Age: 23 Year
  Sex: Female

DRUGS (1)
  1. NUVARING [Suspect]
     Indication: CONTRACEPTION
     Dosage: ETHINYLESTRADIOL 15MCG/ ETONOGESTREL: 120 MCG / DAY
     Route: 067

REACTIONS (2)
  - Lung disorder [Unknown]
  - Pulmonary embolism [Unknown]
